FAERS Safety Report 24162194 (Version 1)
Quarter: 2024Q3

REPORT INFORMATION
  Report Type: Spontaneous
  Country: US (occurrence: None)
  Receive Date: 20240731
  Receipt Date: 20240731
  Transmission Date: 20241016
  Serious: Yes (Other)
  Sender: Public
  Company Number: None

PATIENT
  Age: 55 Year
  Sex: Female
  Weight: 108 kg

DRUGS (18)
  1. LA ROCHE POSAY ANTHELIOS SUNSCREEN SPF 60 ULTRA LIGHT [Suspect]
     Active Substance: AVOBENZONE\HOMOSALATE\OCTISALATE\OCTOCRYLENE\OXYBENZONE
     Indication: Prophylaxis against solar radiation
     Dosage: ?OTHER FREQUENCY : 80 MINUTES TOPICAL?
     Route: 061
     Dates: start: 20240727, end: 20240727
  2. LISINOPRIL [Concomitant]
     Active Substance: LISINOPRIL
  3. NAPROXEN SODIUM [Concomitant]
     Active Substance: NAPROXEN\NAPROXEN SODIUM
  4. GABAPENTIN [Concomitant]
     Active Substance: GABAPENTIN
  5. MOUNJARO [Concomitant]
     Active Substance: TIRZEPATIDE
  6. FAMITODINE [Concomitant]
  7. BUPROPION [Concomitant]
     Active Substance: BUPROPION
  8. PREDNISONE [Concomitant]
     Active Substance: PREDNISONE
  9. FEXOFENADINE [Concomitant]
     Active Substance: FEXOFENADINE HYDROCHLORIDE
  10. BENADRYL [Concomitant]
     Active Substance: DIPHENHYDRAMINE HYDROCHLORIDE
  11. VITAMINS [Concomitant]
     Active Substance: VITAMINS
  12. CETIRIZINE [Concomitant]
     Active Substance: CETIRIZINE HYDROCHLORIDE
  13. VITAMIN C [Concomitant]
     Active Substance: ASCORBIC ACID
  14. BIOTIN [Concomitant]
     Active Substance: BIOTIN
  15. VITAMIN D3 [Concomitant]
     Active Substance: CHOLECALCIFEROL
  16. IRON [Concomitant]
     Active Substance: IRON
  17. MK-7 [Concomitant]
  18. QUERCETIN WITH BROMELAIN [Concomitant]

REACTIONS (6)
  - Dyspnoea [None]
  - Pruritus [None]
  - Swelling [None]
  - Rash [None]
  - Urticaria [None]
  - Therapy non-responder [None]

NARRATIVE: CASE EVENT DATE: 20240727
